FAERS Safety Report 24457279 (Version 8)
Quarter: 2025Q4

REPORT INFORMATION
  Report Type: Report from Study
  Country: US (occurrence: None)
  Receive Date: 20241018
  Receipt Date: 20251020
  Transmission Date: 20260117
  Serious: Yes (Other)
  Sender: UCB
  Company Number: US-UCBSA-2024053165

PATIENT
  Age: 31 Year
  Weight: 66.7 kg

DRUGS (30)
  1. FENFLURAMINE [Suspect]
     Active Substance: FENFLURAMINE
     Indication: Lennox-Gastaut syndrome
     Dosage: 3.8 MILLILITER, 2X/DAY (BID)
  2. FENFLURAMINE [Suspect]
     Active Substance: FENFLURAMINE
     Indication: Generalised tonic-clonic seizure
     Dosage: 3.8 MILLILITER, 2X/DAY (BID)
  3. FENFLURAMINE [Suspect]
     Active Substance: FENFLURAMINE
     Dosage: 16.72 MILLIGRAM PER DAY
  4. FENFLURAMINE [Suspect]
     Active Substance: FENFLURAMINE
     Dosage: 16.2MG/DAY
  5. FENFLURAMINE [Suspect]
     Active Substance: FENFLURAMINE
     Dosage: 0.22 MG/KG/DAY TO A TOTAL OF 15.2 MG/DAY
  6. FENFLURAMINE [Suspect]
     Active Substance: FENFLURAMINE
     Dosage: 3.8 MILLILITER, 2X/DAY (BID)
  7. Epidlolex [Concomitant]
     Indication: Product used for unknown indication
     Dosage: 4.7 MILLILITER, 2X/DAY (BID)
  8. Epidlolex [Concomitant]
     Dosage: 4.8 MILLILITER, 2X/DAY (BID)
  9. Epidlolex [Concomitant]
     Dosage: 4.7 MILLILITER, 2X/DAY (BID)
  10. ETORICOXIB [Concomitant]
     Active Substance: ETORICOXIB
     Indication: Product used for unknown indication
     Dosage: 500 MILLIGRAM, 2X/DAY (BID)
  11. ETORICOXIB [Concomitant]
     Active Substance: ETORICOXIB
     Dosage: 250 MILLIGRAM, 2X/DAY (BID)
  12. LTG XR [Concomitant]
     Indication: Product used for unknown indication
     Dosage: 200 MILLIGRAM, ONCE DAILY (QD)
  13. LTG XR [Concomitant]
     Dosage: 200 MILLIGRAM, ONCE DAILY (QD)
  14. VALPROIC ACID [Concomitant]
     Active Substance: VALPROIC ACID
     Indication: Product used for unknown indication
     Dosage: 250/500
  15. CHOLECALCIFEROL [Concomitant]
     Active Substance: CHOLECALCIFEROL
     Indication: Product used for unknown indication
     Dosage: 125 MICROGRAM, ONCE DAILY (QD)
  16. DIVALPROEX SODIUM [Concomitant]
     Active Substance: DIVALPROEX SODIUM
     Indication: Product used for unknown indication
     Dosage: 250 MILLIGRAM QAM AND 500 MILLIGRAM AT BEDTIME
  17. DIVALPROEX SODIUM [Concomitant]
     Active Substance: DIVALPROEX SODIUM
     Dosage: 250 MG 1 TABLET ONE TIME IN A DAY IN MORNING
  18. DIVALPROEX SODIUM [Concomitant]
     Active Substance: DIVALPROEX SODIUM
     Dosage: 500 MG 1 TABLET ONE TIME IN A DAY IN MORNING
  19. DIVALPROEX SODIUM [Concomitant]
     Active Substance: DIVALPROEX SODIUM
     Dosage: 500 MG 1 TABLET ONE TIME IN A DAY IN MORNING
  20. DIVALPROEX SODIUM [Concomitant]
     Active Substance: DIVALPROEX SODIUM
     Dosage: 250 MG 1 TABLET ONE TIME IN A DAY IN MORNING
  21. DOCUSATE SODIUM [Concomitant]
     Active Substance: DOCUSATE SODIUM
     Indication: Product used for unknown indication
     Dosage: 100 MILLIGRAM, ONCE DAILY (QD)
  22. ETHOSUXIMIDE [Concomitant]
     Active Substance: ETHOSUXIMIDE
     Indication: Product used for unknown indication
     Dosage: , 2X/DAY (BID)
  23. ETHOSUXIMIDE [Concomitant]
     Active Substance: ETHOSUXIMIDE
     Dosage: 250 MILLIGRAM, 2X/DAY (BID)
  24. LEVOCARNITINE [Concomitant]
     Active Substance: LEVOCARNITINE
     Indication: Product used for unknown indication
     Dosage: 500 MILLIGRAM, 2X/DAY (BID)
  25. LORAZEPAM [Concomitant]
     Active Substance: LORAZEPAM
     Indication: Seizure cluster
     Dosage: 1 MILLIGRAM, AS NEEDED (PRN), MAY REPEAT FOR 1 MORE DOSE IF NEEDED FOR TOTAL 2 TABLETS 24 HOURS
  26. LORAZEPAM [Concomitant]
     Active Substance: LORAZEPAM
     Dosage: 1 MILLIGRAM, AS NEEDED (PRN), MAY REPEAT FOR 1 MORE DOSE IF NEEDED FOR TOTAL 2 TABLETS 24 HOURS
  27. meletonin [Concomitant]
     Indication: Product used for unknown indication
     Dosage: 2 MILLIGRAM, 2X/DAY (BID)
  28. NAYZILAM [Concomitant]
     Active Substance: MIDAZOLAM
     Indication: Generalised tonic-clonic seizure
     Dosage: 5 MILLIGRAM AS NEEDED
  29. multiple vitamins minerals [Concomitant]
     Indication: Product used for unknown indication
     Dosage: UNK
  30. Probiotic product [Concomitant]
     Indication: Product used for unknown indication
     Dosage: UNK

REACTIONS (7)
  - Seizure [Unknown]
  - Tonic convulsion [Unknown]
  - Myoclonic epilepsy [Unknown]
  - Generalised tonic-clonic seizure [Unknown]
  - Brain operation [Unknown]
  - Urinary tract infection [Not Recovered/Not Resolved]
  - Heavy menstrual bleeding [Unknown]
